FAERS Safety Report 10204433 (Version 1)
Quarter: 2014Q2

REPORT INFORMATION
  Report Type: Spontaneous
  Country: US (occurrence: US)
  Receive Date: 20140529
  Receipt Date: 20140529
  Transmission Date: 20141212
  Serious: No
  Sender: FDA-Public Use
  Company Number: US-SANOFI-AVENTIS-2013SA061269

PATIENT
  Age: 81 Year
  Sex: Male
  Weight: 92.98 kg

DRUGS (1)
  1. LANTUS [Suspect]

REACTIONS (1)
  - Malaise [Unknown]
